FAERS Safety Report 9894949 (Version 2)
Quarter: 2014Q1

REPORT INFORMATION
  Report Type: Spontaneous
  Country: US (occurrence: US)
  Receive Date: 20140213
  Receipt Date: 20140213
  Transmission Date: 20141002
  Serious: No
  Sender: FDA-Public Use
  Company Number: US-BRISTOL-MYERS SQUIBB COMPANY-17254525

PATIENT
  Age: 40 Year
  Sex: Female
  Weight: 145.57 kg

DRUGS (2)
  1. ABATACEPT SUBQ INJECTION 125MG/ML [Suspect]
     Indication: RHEUMATOID ARTHRITIS
     Dosage: INJECTION?LAST DOSE ON 19-DEC-2012
     Route: 058
  2. ERYTHROMYCIN [Concomitant]

REACTIONS (2)
  - Cough [Unknown]
  - Migraine [Unknown]
